FAERS Safety Report 4483355-1 (Version None)
Quarter: 2004Q4

REPORT INFORMATION
  Report Type: 
  Country: None (occurrence: None)
  Receive Date: 20041020
  Receipt Date: 20040921
  Transmission Date: 20050328
  Serious: Yes (Death, Hospitalization)
  Sender: FDA-Public Use
  Company Number: EWC040940470

PATIENT
  Age: 59 Year
  Sex: Male
  Weight: 98 kg

DRUGS (4)
  1. OLANZAPINE [Suspect]
     Indication: SCHIZOPHRENIA
     Dosage: 30 MG DAY
     Route: 030
     Dates: start: 20040724, end: 20040727
  2. CARDURA [Concomitant]
  3. CLOPIXOL DEPOT (ZUCLOPENTHIXOL DECANOATE) [Concomitant]
  4. TISERCIN (LEVOMEPROMAZINE) [Concomitant]

REACTIONS (25)
  - AGGRESSION [None]
  - AGITATION [None]
  - ATHEROSCLEROSIS [None]
  - BLADDER DISCOMFORT [None]
  - BUNDLE BRANCH BLOCK LEFT [None]
  - CARDIAC ARREST [None]
  - CARDIOMEGALY [None]
  - CARDIOMYOPATHY [None]
  - CONDITION AGGRAVATED [None]
  - CONSTIPATION [None]
  - FALL [None]
  - FLATULENCE [None]
  - GASTROINTESTINAL PAIN [None]
  - HYPERTENSION [None]
  - MYOCARDIAL ISCHAEMIA [None]
  - PSYCHOTIC DISORDER [None]
  - PULMONARY ARTERY THROMBOSIS [None]
  - PULMONARY EMBOLISM [None]
  - RENAL DISORDER [None]
  - RESPIRATORY ARREST [None]
  - TACHYCARDIA [None]
  - THERAPY NON-RESPONDER [None]
  - TREMOR [None]
  - URINARY RETENTION [None]
  - VENTRICULAR DYSFUNCTION [None]
